FAERS Safety Report 6086231-6 (Version None)
Quarter: 2009Q1

REPORT INFORMATION
  Report Type: 
  Country: None (occurrence: None)
  Receive Date: 20090220
  Receipt Date: 20090210
  Transmission Date: 20090719
  Serious: Yes (Other)
  Sender: FDA-Public Use
  Company Number: US-JNJFOC-20090100895

PATIENT
  Sex: Male
  Weight: 51.71 kg

DRUGS (5)
  1. REMICADE [Suspect]
     Indication: CROHN'S DISEASE
     Route: 042
  2. IRON [Concomitant]
  3. MERCAPTOPURINE [Concomitant]
  4. PENTASA [Concomitant]
  5. PREDNISONE TAB [Concomitant]

REACTIONS (2)
  - BREAST MASS [None]
  - GYNAECOMASTIA [None]
